FAERS Safety Report 9816740 (Version 1)
Quarter: 2014Q1

REPORT INFORMATION
  Report Type: Spontaneous
  Country: US (occurrence: US)
  Receive Date: 20140114
  Receipt Date: 20140114
  Transmission Date: 20141002
  Serious: Yes (Death)
  Sender: FDA-Public Use
  Company Number: US-PFIZER INC-2014007948

PATIENT
  Age: 91 Year
  Sex: Male

DRUGS (4)
  1. NADOLOL [Suspect]
     Dosage: UNK
     Route: 048
  2. ACETYLSALICYLIC ACID [Suspect]
     Dosage: UNK
     Route: 048
  3. GLIBURIDE/METFORMIN HYDROCHLORIDE [Suspect]
     Dosage: UNK
     Route: 048
  4. PREDNISONE [Suspect]
     Dosage: UNK
     Route: 048

REACTIONS (3)
  - Completed suicide [Fatal]
  - Toxicity to various agents [None]
  - Intentional drug misuse [None]
